FAERS Safety Report 4712113-5 (Version None)
Quarter: 2005Q3

REPORT INFORMATION
  Report Type: 
  Country: None (occurrence: None)
  Receive Date: 20050712
  Receipt Date: 20050620
  Transmission Date: 20060218
  Serious: Yes (Disabling)
  Sender: FDA-Public Use
  Company Number: GB-SANOFI-SYNTHELABO-A01200504363

PATIENT
  Sex: Male

DRUGS (3)
  1. XATRAL [Suspect]
     Indication: BENIGN PROSTATIC HYPERPLASIA
     Route: 048
     Dates: start: 20031201, end: 20050620
  2. DIOVAN [Concomitant]
     Indication: HYPERTENSION
     Dosage: 40 MG
     Route: 065
     Dates: start: 20050301
  3. DIOVAN [Concomitant]
     Dosage: 40 MG
     Route: 065
     Dates: start: 20050301

REACTIONS (1)
  - VISION BLURRED [None]
